FAERS Safety Report 17811112 (Version 1)
Quarter: 2020Q2

REPORT INFORMATION
  Report Type: Spontaneous
  Country: US (occurrence: US)
  Receive Date: 20200520
  Receipt Date: 20200520
  Transmission Date: 20200714
  Serious: Yes (Death)
  Sender: FDA-Public Use
  Company Number: None

PATIENT
  Age: 51 Year
  Sex: Male
  Weight: 114 kg

DRUGS (1)
  1. BRENTUXIMAB [Suspect]
     Active Substance: BRENTUXIMAB VEDOTIN
     Indication: HODGKIN^S DISEASE
     Dosage: ?          OTHER FREQUENCY:Q21DAYS;?
     Route: 042
     Dates: start: 20200429, end: 20200429

REACTIONS (13)
  - Tachycardia [None]
  - Septic shock [None]
  - Acidosis [None]
  - Pyrexia [None]
  - Diabetic ketoacidosis [None]
  - Acute respiratory distress syndrome [None]
  - Deep vein thrombosis [None]
  - Acute kidney injury [None]
  - Nephrolithiasis [None]
  - Hypoglycaemia [None]
  - Asthenia [None]
  - Cardiogenic shock [None]
  - Multiple organ dysfunction syndrome [None]

NARRATIVE: CASE EVENT DATE: 20200429
